FAERS Safety Report 4405836-9 (Version None)
Quarter: 2004Q3

REPORT INFORMATION
  Report Type: 
  Country: None (occurrence: None)
  Receive Date: 20040723
  Receipt Date: 20040108
  Transmission Date: 20050211
  Serious: No
  Sender: FDA-Public Use
  Company Number: US-GLAXOSMITHKLINE-A0492001A

PATIENT
  Age: 63 Year
  Sex: Male

DRUGS (7)
  1. AVANDIA [Suspect]
     Dosage: 8MG PER DAY
     Route: 048
     Dates: start: 20040104
  2. GLUCOVANCE [Concomitant]
  3. DIGITEK [Concomitant]
  4. ZOCOR [Concomitant]
  5. COREG [Concomitant]
  6. PROTONIX [Concomitant]
  7. PREDNISONE [Concomitant]

REACTIONS (1)
  - DIZZINESS [None]
